FAERS Safety Report 8280342-2 (Version None)
Quarter: 2012Q2

REPORT INFORMATION
  Report Type: 
  Country: None (occurrence: None)
  Receive Date: 20120412
  Receipt Date: 20120104
  Transmission Date: 20120825
  Serious: No
  Sender: FDA-Public Use
  Company Number: US-ASTRAZENECA-2012SE00889

PATIENT
  Age: 69 Year
  Sex: Female

DRUGS (2)
  1. OTHER MEDS [Interacting]
     Route: 065
  2. NEXIUM [Suspect]
     Route: 048

REACTIONS (3)
  - DRUG INTERACTION [None]
  - HYPERTENSION [None]
  - HYPOTENSION [None]
